FAERS Safety Report 14959487 (Version 1)
Quarter: 2018Q3

REPORT INFORMATION
  Report Type: Spontaneous
  Country: US (occurrence: US)
  Receive Date: 20180531
  Receipt Date: 20180531
  Transmission Date: 20181010
  Serious: No
  Sender: FDA-Public Use
  Company Number: US-TARO-2018TAR00188

PATIENT
  Age: 1 Year
  Sex: Female
  Weight: 9.7 kg

DRUGS (1)
  1. FLUOCINOLONE ACETONIDE TOPICAL BODY OIL 0.01% [Suspect]
     Active Substance: FLUOCINOLONE ACETONIDE
     Indication: DERMATITIS
     Dosage: ^SMALL AMOUNT,^ 2X/DAY
     Route: 061
     Dates: start: 201802, end: 201802

REACTIONS (6)
  - Contusion [Not Recovered/Not Resolved]
  - Drug ineffective [Recovered/Resolved]
  - Dermatitis [Not Recovered/Not Resolved]
  - Dry skin [Not Recovered/Not Resolved]
  - Product quality issue [Recovered/Resolved]
  - Skin discolouration [Not Recovered/Not Resolved]

NARRATIVE: CASE EVENT DATE: 201802
